FAERS Safety Report 6494284-6 (Version None)
Quarter: 2009Q4

REPORT INFORMATION
  Report Type: 
  Country: None (occurrence: None)
  Receive Date: 20091214
  Receipt Date: 20091030
  Transmission Date: 20100525
  Serious: No
  Sender: FDA-Public Use
  Company Number: US-BRISTOL-MYERS SQUIBB COMPANY-14491104

PATIENT
  Age: 42 Year
  Sex: Male
  Weight: 143 kg

DRUGS (9)
  1. ABILIFY [Suspect]
     Indication: BIPOLAR DISORDER
     Dosage: DOSE REDUCED FROM 20MG TO 15MG THEN TO 10MG
  2. DEPAKOTE [Concomitant]
  3. BUSPAR [Concomitant]
  4. BENADRYL [Concomitant]
  5. ASPIRIN [Concomitant]
  6. DITROPAN [Concomitant]
  7. PROPRANOLOL [Concomitant]
  8. TRAZODONE HCL [Concomitant]
  9. PRILOSEC [Concomitant]

REACTIONS (4)
  - MEMORY IMPAIRMENT [None]
  - MYALGIA [None]
  - POLLAKIURIA [None]
  - TREMOR [None]
